FAERS Safety Report 25669484 (Version 2)
Quarter: 2025Q3

REPORT INFORMATION
  Report Type: Spontaneous
  Country: CN (occurrence: CN)
  Receive Date: 20250812
  Receipt Date: 20250821
  Transmission Date: 20251020
  Serious: Yes (Other)
  Sender: ROCHE
  Company Number: CN-ROCHE-10000356227

PATIENT
  Age: 53 Year
  Sex: Female

DRUGS (1)
  1. GAZYVA [Suspect]
     Active Substance: OBINUTUZUMAB
     Indication: Glomerulonephritis membranous
     Route: 065
     Dates: start: 20250802

REACTIONS (21)
  - Platelet count decreased [Recovered/Resolved]
  - Thrombocytopenic purpura [Unknown]
  - Off label use [Unknown]
  - Gingival bleeding [Unknown]
  - Haematuria [Unknown]
  - Melaena [Unknown]
  - Hyperlipidaemia [Unknown]
  - Hypothyroidism [Unknown]
  - Proteinuria [Unknown]
  - Haemoglobin decreased [Unknown]
  - Blood albumin decreased [Unknown]
  - Gallbladder enlargement [Unknown]
  - Renal vessel disorder [Unknown]
  - Red blood cell count decreased [Unknown]
  - Protein total decreased [Unknown]
  - Blood potassium decreased [Unknown]
  - Blood chloride increased [Unknown]
  - Blood calcium decreased [Unknown]
  - Blood triglycerides increased [Unknown]
  - Hepatitis B core antibody positive [Unknown]
  - Skin haemorrhage [Unknown]

NARRATIVE: CASE EVENT DATE: 20250804
